FAERS Safety Report 5386981-0 (Version None)
Quarter: 2007Q3

REPORT INFORMATION
  Report Type: 
  Country: None (occurrence: None)
  Receive Date: 20070713
  Receipt Date: 20070702
  Transmission Date: 20080115
  Serious: Yes (Hospitalization, Other)
  Sender: FDA-Public Use
  Company Number: US-PFIZER INC-2007055491

PATIENT
  Sex: Female
  Weight: 69.9 kg

DRUGS (2)
  1. BEXTRA [Suspect]
     Indication: ARTHRITIS
     Dates: start: 20030108, end: 20030208
  2. VIOXX [Suspect]
     Indication: PAIN
     Dates: start: 20030307

REACTIONS (2)
  - ISCHAEMIC STROKE [None]
  - POST-TRAUMATIC STRESS DISORDER [None]
